FAERS Safety Report 13002758 (Version 2)
Quarter: 2017Q2

REPORT INFORMATION
  Report Type: Spontaneous
  Country: US (occurrence: US)
  Receive Date: 20161206
  Receipt Date: 20170407
  Transmission Date: 20170830
  Serious: No
  Sender: FDA-Public Use
  Company Number: US-JNJFOC-20161110405

PATIENT
  Sex: Male
  Weight: 95.26 kg

DRUGS (1)
  1. STELARA [Suspect]
     Active Substance: USTEKINUMAB
     Indication: PSORIASIS
     Dosage: 45MG/0.5 ML
     Route: 058
     Dates: start: 2016

REACTIONS (3)
  - Accidental exposure to product [Unknown]
  - Underdose [Unknown]
  - Therapeutic response decreased [Unknown]
